FAERS Safety Report 10551593 (Version 5)
Quarter: 2015Q3

REPORT INFORMATION
  Report Type: Spontaneous
  Country: US (occurrence: US)
  Receive Date: 20141029
  Receipt Date: 20150728
  Transmission Date: 20151125
  Serious: No
  Sender: FDA-Public Use
  Company Number: US-PFIZER INC-2014297983

PATIENT
  Age: 57 Year
  Sex: Male
  Weight: 159 kg

DRUGS (2)
  1. LYRICA [Suspect]
     Active Substance: PREGABALIN
     Indication: PARAESTHESIA
     Dosage: 2X/DAY (1 CAPSULE IN MORNING, 2 AT NIGHT)
     Dates: end: 201409
  2. LYRICA [Suspect]
     Active Substance: PREGABALIN
     Indication: PAIN

REACTIONS (6)
  - Muscle spasms [Recovered/Resolved]
  - Product use issue [Unknown]
  - Gastric disorder [Unknown]
  - Withdrawal syndrome [Recovered/Resolved]
  - Insomnia [Recovered/Resolved]
  - Blood pressure abnormal [Unknown]

NARRATIVE: CASE EVENT DATE: 201409
